FAERS Safety Report 21421415 (Version 1)
Quarter: 2022Q4

REPORT INFORMATION
  Report Type: Spontaneous
  Country: US (occurrence: None)
  Receive Date: 20221006
  Receipt Date: 20221006
  Transmission Date: 20230113
  Serious: Yes (Death)
  Sender: FDA-Public Use
  Company Number: None

PATIENT
  Sex: Male

DRUGS (1)
  1. EUFLEXXA [Suspect]
     Active Substance: HYALURONATE SODIUM
     Dosage: OTHER QUANTITY : 20/2 MG/ML;?
     Route: 014
     Dates: start: 20220916

REACTIONS (1)
  - Road traffic accident [None]
